FAERS Safety Report 24164697 (Version 2)
Quarter: 2024Q3

REPORT INFORMATION
  Report Type: Spontaneous
  Country: US (occurrence: US)
  Receive Date: 20240801
  Receipt Date: 20240816
  Transmission Date: 20241016
  Serious: Yes (Hospitalization, Other)
  Sender: TEVA
  Company Number: US-TEVA-VS-3224993

PATIENT
  Age: 66 Year
  Sex: Male

DRUGS (8)
  1. NALTREXONE [Suspect]
     Active Substance: NALTREXONE
     Indication: Back pain
     Dosage: RECEIVED LOW-DOSE OF NALTREXONE FOR THE FIRST WEEK
     Route: 048
  2. KETAMINE [Suspect]
     Active Substance: KETAMINE
     Indication: Back pain
     Route: 065
  3. CANNABIS SATIVA FLOWERING TOP [Suspect]
     Active Substance: CANNABIS SATIVA FLOWERING TOP
     Indication: Back pain
     Route: 065
  4. PREGABALIN [Suspect]
     Active Substance: PREGABALIN
     Indication: Back pain
     Route: 065
  5. DULOXETINE HYDROCHLORIDE [Suspect]
     Active Substance: DULOXETINE HYDROCHLORIDE
     Indication: Back pain
     Route: 065
  6. OXYCODONE [Suspect]
     Active Substance: OXYCODONE
     Indication: Back pain
     Dosage: RECEIVED HIGH DOSES OF OXYCODONE
     Route: 065
  7. GABAPENTIN [Suspect]
     Active Substance: GABAPENTIN
     Indication: Back pain
     Route: 065
  8. FENTANYL [Suspect]
     Active Substance: FENTANYL\FENTANYL CITRATE
     Indication: Back pain
     Dosage: RECEIVED HIGH DOSES OF FENTANYL
     Route: 065

REACTIONS (10)
  - Drug withdrawal syndrome [Recovered/Resolved]
  - Somnolence [Unknown]
  - Off label use [Unknown]
  - Mental status changes [Unknown]
  - Restlessness [Unknown]
  - Anxiety [Unknown]
  - Akathisia [Unknown]
  - Drug ineffective [Unknown]
  - Lactic acidosis [Unknown]
  - Discomfort [Unknown]
